FAERS Safety Report 15616873 (Version 2)
Quarter: 2019Q1

REPORT INFORMATION
  Report Type: Report from Study
  Country: CO (occurrence: CO)
  Receive Date: 20181114
  Receipt Date: 20190313
  Transmission Date: 20190417
  Serious: Yes (Other)
  Sender: FDA-Public Use
  Company Number: CO-EMD SERONO-9051849

PATIENT
  Age: 15 Year
  Sex: Male

DRUGS (1)
  1. SAIZEN [Suspect]
     Active Substance: SOMATROPIN
     Indication: GROWTH HORMONE DEFICIENCY
     Route: 058
     Dates: start: 20140915

REACTIONS (6)
  - Oedema peripheral [Recovering/Resolving]
  - Headache [Recovering/Resolving]
  - Arthralgia [Recovering/Resolving]
  - Arthritis [Recovering/Resolving]
  - Pyrexia [Recovering/Resolving]
  - Feeling hot [Recovering/Resolving]

NARRATIVE: CASE EVENT DATE: 20181018
